FAERS Safety Report 11132295 (Version 2)
Quarter: 2015Q3

REPORT INFORMATION
  Report Type: Report from Study
  Country: US (occurrence: US)
  Receive Date: 20150522
  Receipt Date: 20150706
  Transmission Date: 20151125
  Serious: Yes (Hospitalization)
  Sender: FDA-Public Use
  Company Number: US-SA-2014SA079778

PATIENT
  Age: 61 Year
  Sex: Female

DRUGS (1)
  1. AUBAGIO [Suspect]
     Active Substance: TERIFLUNOMIDE
     Indication: MULTIPLE SCLEROSIS
     Route: 048
     Dates: start: 20140514

REACTIONS (5)
  - Blood pressure increased [Recovered/Resolved]
  - Cellulitis [Unknown]
  - Alopecia [Recovered/Resolved]
  - Unevaluable event [Unknown]
  - Abscess [Unknown]

NARRATIVE: CASE EVENT DATE: 2014
